FAERS Safety Report 21332950 (Version 2)
Quarter: 2022Q4

REPORT INFORMATION
  Report Type: Report from Study
  Country: FR (occurrence: None)
  Receive Date: 20220914
  Receipt Date: 20221006
  Transmission Date: 20230112
  Serious: Yes (Death, Hospitalization)
  Sender: FDA-Public Use
  Company Number: 2022A313819

PATIENT
  Age: 33830 Day
  Sex: Male
  Weight: 74 kg

DRUGS (15)
  1. EVUSHELD [Suspect]
     Active Substance: CILGAVIMAB\TIXAGEVIMAB
     Indication: COVID-19 prophylaxis
     Dosage: ONCE/SINGLE ADMINISTRATION
     Route: 030
     Dates: start: 20220105
  2. CASIRIVIMAB\IMDEVIMAB [Concomitant]
     Active Substance: CASIRIVIMAB\IMDEVIMAB
     Dates: start: 20210919, end: 20211110
  3. CYCLOSPORINE [Concomitant]
     Active Substance: CYCLOSPORINE
     Route: 065
     Dates: start: 20220413, end: 20220512
  4. CELLCEPT [Concomitant]
     Active Substance: MYCOPHENOLATE MOFETIL
     Route: 065
     Dates: start: 20220501, end: 20220520
  5. PANTOPRAZOLE [Concomitant]
     Active Substance: PANTOPRAZOLE
     Route: 065
     Dates: start: 20220501, end: 20220520
  6. FUROSEMIDE [Concomitant]
     Active Substance: FUROSEMIDE
     Route: 065
     Dates: start: 20220502, end: 20220520
  7. LEVOTHYROXINE [Concomitant]
     Active Substance: LEVOTHYROXINE
     Route: 065
     Dates: start: 20220502, end: 20220511
  8. RILMENIDINE [Concomitant]
     Active Substance: RILMENIDINE
     Route: 065
     Dates: start: 20220502, end: 20220520
  9. URAPIDIL LP [Concomitant]
     Route: 065
     Dates: start: 20220502, end: 20220520
  10. NEORAL [Concomitant]
     Active Substance: CYCLOSPORINE
     Route: 065
     Dates: start: 20220501, end: 20220502
  11. KARDEGIC [Concomitant]
     Active Substance: ASPIRIN DL-LYSINE
     Route: 065
     Dates: start: 20220501, end: 20220520
  12. RILMENIDINE [Concomitant]
     Active Substance: RILMENIDINE
     Route: 065
     Dates: start: 20220502, end: 20220520
  13. RILMENIDINE [Concomitant]
     Active Substance: RILMENIDINE
     Route: 065
     Dates: start: 20220502, end: 20220520
  14. ATORVASTATIN [Concomitant]
     Active Substance: ATORVASTATIN
     Route: 065
     Dates: start: 20220502, end: 20220520
  15. ATORVASTATIN [Concomitant]
     Active Substance: ATORVASTATIN
     Route: 065
     Dates: start: 20220502, end: 20220520

REACTIONS (2)
  - Cholecystitis acute [Fatal]
  - Lung disorder [Fatal]

NARRATIVE: CASE EVENT DATE: 20220430
